FAERS Safety Report 9979113 (Version 1)
Quarter: 2014Q1

REPORT INFORMATION
  Report Type: Report from Study
  Country: US (occurrence: US)
  Receive Date: 20140306
  Receipt Date: 20140306
  Transmission Date: 20141002
  Serious: No
  Sender: FDA-Public Use
  Company Number: US-ABBVIE-13P-163-1170047-00

PATIENT
  Age: 34 Year
  Sex: Female

DRUGS (9)
  1. HUMIRA [Suspect]
     Indication: CROHN^S DISEASE
     Dates: start: 20130916
  2. IBUPROFEN [Suspect]
     Indication: PAIN
  3. UNKNOWN MEDICATION [Suspect]
     Indication: MIGRAINE
  4. TOPIRAMATE [Concomitant]
     Indication: MIGRAINE PROPHYLAXIS
  5. CYMBALTA [Concomitant]
     Indication: DEPRESSION
  6. INVEGA [Concomitant]
     Indication: SCHIZOPHRENIA
  7. HYDROXYZINE [Concomitant]
     Indication: ANXIETY
  8. PRAZOSIN [Concomitant]
     Indication: INSOMNIA
     Dosage: AT BEDTIME
  9. ALBUTEROL [Concomitant]
     Indication: ASTHMA
     Route: 055

REACTIONS (12)
  - Somnolence [Unknown]
  - Migraine [Recovered/Resolved]
  - Dizziness [Recovered/Resolved]
  - Nausea [Recovered/Resolved]
  - Migraine [Unknown]
  - Dizziness [Recovered/Resolved]
  - Somnolence [Unknown]
  - Nausea [Not Recovered/Not Resolved]
  - Dizziness [Recovered/Resolved]
  - Headache [Recovered/Resolved]
  - Drug effect decreased [Not Recovered/Not Resolved]
  - Drug ineffective [Not Recovered/Not Resolved]
